FAERS Safety Report 18680934 (Version 2)
Quarter: 2023Q1

REPORT INFORMATION
  Report Type: Spontaneous
  Country: IT (occurrence: IT)
  Receive Date: 20201230
  Receipt Date: 20230215
  Transmission Date: 20230418
  Serious: Yes (Other)
  Sender: FDA-Public Use
  Company Number: IT-MLMSERVICE-20201221-2629939-1

PATIENT
  Age: 59 Year
  Sex: Male

DRUGS (7)
  1. ASPIRIN [Suspect]
     Active Substance: ASPIRIN
     Indication: Acute myocardial infarction
     Dosage: 100 MILLIGRAM, ONCE A DAY
     Route: 065
     Dates: start: 201704
  2. CLOPIDOGREL [Suspect]
     Active Substance: CLOPIDOGREL BISULFATE
     Indication: Acute myocardial infarction
     Dosage: 75 MILLIGRAM, ONCE A DAY
     Route: 065
     Dates: start: 201704
  3. COAGULATION FACTOR VIIA HUMAN [Concomitant]
     Active Substance: COAGULATION FACTOR VIIA HUMAN
     Indication: Factor VIII deficiency
     Dosage: 3000 INTERNATIONAL UNIT, EVERY OTHER DAY
     Route: 065
     Dates: start: 201709
  4. DOLUTEGRAVIR [Concomitant]
     Active Substance: DOLUTEGRAVIR
     Indication: Hepatitis C
     Dosage: UNK
     Route: 065
     Dates: start: 2016
  5. DOLUTEGRAVIR [Concomitant]
     Active Substance: DOLUTEGRAVIR
     Indication: HIV infection
  6. DARUNAVIR [Concomitant]
     Active Substance: DARUNAVIR
     Indication: Hepatitis C
     Dosage: UNK
     Route: 065
     Dates: start: 2016
  7. DARUNAVIR [Concomitant]
     Active Substance: DARUNAVIR
     Indication: HIV infection

REACTIONS (2)
  - Haemarthrosis [Recovered/Resolved]
  - Condition aggravated [Recovered/Resolved]
